FAERS Safety Report 9603088 (Version 1)
Quarter: 2013Q4

REPORT INFORMATION
  Report Type: Spontaneous
  Country: DE (occurrence: DE)
  Receive Date: 20131007
  Receipt Date: 20131007
  Transmission Date: 20140711
  Serious: Yes (Hospitalization)
  Sender: FDA-Public Use
  Company Number: DE-BRISTOL-MYERS SQUIBB COMPANY-19490192

PATIENT
  Sex: Female

DRUGS (4)
  1. ERBITUX [Suspect]
     Indication: COLORECTAL CANCER
     Route: 042
  2. CALCIUM FOLINATE [Concomitant]
  3. 5-FLUOROURACIL [Concomitant]
  4. IRINOTECAN [Concomitant]

REACTIONS (1)
  - Cerebrovascular accident [Not Recovered/Not Resolved]
